FAERS Safety Report 18801876 (Version 1)
Quarter: 2021Q1

REPORT INFORMATION
  Report Type: Spontaneous
  Country: US (occurrence: US)
  Receive Date: 20210128
  Receipt Date: 20210128
  Transmission Date: 20210419
  Serious: No
  Sender: FDA-Public Use
  Company Number: US-DRREDDYS-USA/USA/21/0131043

PATIENT
  Sex: Female

DRUGS (1)
  1. GUAIFENESIN AND PSEUDOEPHEDRINE HYDROCHLORIDE EXTENDED?RELEASE TABLETS [Suspect]
     Active Substance: GUAIFENESIN\PSEUDOEPHEDRINE HYDROCHLORIDE
     Indication: SINUSITIS
     Dosage: 1200 MG/ 120 MG
     Route: 048
     Dates: start: 2017

REACTIONS (2)
  - Product use in unapproved indication [Unknown]
  - Inappropriate schedule of product administration [Not Recovered/Not Resolved]
